FAERS Safety Report 14545213 (Version 2)
Quarter: 2018Q1

REPORT INFORMATION
  Report Type: Spontaneous
  Country: US (occurrence: US)
  Receive Date: 20180218
  Receipt Date: 20180302
  Transmission Date: 20180509
  Serious: Yes (Other)
  Sender: FDA-Public Use
  Company Number: US-SUNOVION-2018SUN000588

PATIENT
  Age: 54 Year
  Sex: Female

DRUGS (10)
  1. APTIOM [Suspect]
     Active Substance: ESLICARBAZEPINE ACETATE
     Indication: SEIZURE
     Dosage: 200 MG, QD
     Route: 048
     Dates: start: 20171201
  2. APTIOM [Suspect]
     Active Substance: ESLICARBAZEPINE ACETATE
     Indication: EPILEPSY
     Dosage: 800 MG, QD
     Route: 048
     Dates: end: 20180101
  3. VIMPAT [Concomitant]
     Active Substance: LACOSAMIDE
     Indication: SEIZURE
  4. TAGRISSO [Concomitant]
     Active Substance: OSIMERTINIB
     Dosage: 80 MG, UNK
  5. MULTIVITAMIN [Concomitant]
     Active Substance: VITAMINS
  6. OMEPRAZOLE. [Concomitant]
     Active Substance: OMEPRAZOLE
  7. ZONISAMIDE. [Concomitant]
     Active Substance: ZONISAMIDE
  8. CHOLESTYRAMINE. [Concomitant]
     Active Substance: CHOLESTYRAMINE
  9. SYNTHROID [Concomitant]
     Active Substance: LEVOTHYROXINE SODIUM
  10. APTIOM [Suspect]
     Active Substance: ESLICARBAZEPINE ACETATE
     Dosage: UNK

REACTIONS (17)
  - Malaise [Unknown]
  - Dermatitis exfoliative [Recovering/Resolving]
  - Lymphadenopathy [Recovered/Resolved]
  - Chills [Unknown]
  - Skin exfoliation [Recovering/Resolving]
  - Skin discolouration [Unknown]
  - Pain [Unknown]
  - Swelling face [Unknown]
  - Necrosis [Recovering/Resolving]
  - Pyrexia [Recovered/Resolved]
  - Rash [Recovered/Resolved]
  - Asthenia [Unknown]
  - Headache [Unknown]
  - Drug reaction with eosinophilia and systemic symptoms [Recovered/Resolved]
  - Pruritus [Unknown]
  - Herpes zoster [Unknown]
  - Fatigue [Unknown]

NARRATIVE: CASE EVENT DATE: 20180101
